FAERS Safety Report 8344629 (Version 7)
Quarter: 2013Q4

REPORT INFORMATION
  Report Type: Spontaneous
  Country: US (occurrence: US)
  Receive Date: 20120120
  Receipt Date: 20131212
  Transmission Date: 20140711
  Serious: No
  Sender: FDA-Public Use
  Company Number: US-BIOGENIDEC-2012BI001217

PATIENT
  Age: 59 Year
  Sex: Female

DRUGS (1)
  1. TYSABRI [Suspect]
     Indication: MULTIPLE SCLEROSIS
     Route: 042
     Dates: start: 20120106

REACTIONS (27)
  - Memory impairment [Not Recovered/Not Resolved]
  - Tooth disorder [Recovered/Resolved]
  - Poor venous access [Recovered/Resolved]
  - Pain [Not Recovered/Not Resolved]
  - Dehydration [Recovered/Resolved]
  - Contusion [Recovered/Resolved]
  - Fall [Recovered/Resolved]
  - Diarrhoea [Recovered/Resolved]
  - Hearing impaired [Recovered/Resolved]
  - Ear infection [Not Recovered/Not Resolved]
  - Ear pain [Recovered/Resolved]
  - Cerumen impaction [Recovered/Resolved]
  - Drug dose omission [Unknown]
  - Anxiety [Unknown]
  - Vitamin D abnormal [Unknown]
  - Pernicious anaemia [Unknown]
  - Blood cholesterol abnormal [Unknown]
  - Gait disturbance [Not Recovered/Not Resolved]
  - Coordination abnormal [Unknown]
  - Cognitive disorder [Unknown]
  - Obsessive-compulsive disorder [Unknown]
  - Stress [Unknown]
  - Vitamin D decreased [Unknown]
  - Drug ineffective [Unknown]
  - Tooth infection [Unknown]
  - Multiple sclerosis [Not Recovered/Not Resolved]
  - Headache [Not Recovered/Not Resolved]
